FAERS Safety Report 5141800-2 (Version None)
Quarter: 2006Q4

REPORT INFORMATION
  Report Type: 
  Country: None (occurrence: None)
  Receive Date: 20061027
  Receipt Date: 20061016
  Transmission Date: 20070319
  Serious: Yes (Other)
  Sender: FDA-Public Use
  Company Number: 2006128973

PATIENT
  Age: 67 Year
  Sex: Female

DRUGS (1)
  1. AROMASIN [Suspect]
     Indication: BREAST CANCER
     Dosage: 25 MG (25 MG, 1 IN 1D), ORAL
     Route: 048
     Dates: end: 20061001

REACTIONS (3)
  - ASTHMA [None]
  - FUNGAL SKIN INFECTION [None]
  - ROTATOR CUFF SYNDROME [None]
